FAERS Safety Report 5893335-7 (Version None)
Quarter: 2008Q3

REPORT INFORMATION
  Report Type: 
  Country: None (occurrence: None)
  Receive Date: 20080923
  Receipt Date: 20080915
  Transmission Date: 20090109
  Serious: Yes (Hospitalization)
  Sender: FDA-Public Use
  Company Number: BR-ASTRAZENECA-2008UW19204

PATIENT
  Age: 73 Year
  Sex: Female
  Weight: 71 kg

DRUGS (2)
  1. CRESTOR [Suspect]
     Indication: HYPERCHOLESTEROLAEMIA
     Route: 048
     Dates: start: 20071201
  2. ARTROVIT [Concomitant]
     Indication: OSTEOARTHRITIS
     Route: 048
     Dates: start: 20070301

REACTIONS (5)
  - ANAEMIA [None]
  - APHTHOUS STOMATITIS [None]
  - RASH [None]
  - TACHYCARDIA [None]
  - WEIGHT INCREASED [None]
